FAERS Safety Report 4573971-0 (Version None)
Quarter: 2005Q1

REPORT INFORMATION
  Report Type: 
  Country: None (occurrence: None)
  Receive Date: 20050204
  Receipt Date: 20050126
  Transmission Date: 20050727
  Serious: Yes (Hospitalization)
  Sender: FDA-Public Use
  Company Number: 2004UW25566

PATIENT
  Age: 56 Year
  Sex: Female
  Weight: 77.8 kg

DRUGS (24)
  1. GEFITINIB [Suspect]
     Indication: BRAIN NEOPLASM MALIGNANT
     Dosage: 500 MG QD PO
     Route: 048
     Dates: start: 20041029, end: 20041209
  2. GEFITINIB [Suspect]
     Indication: GLIOMA
     Dosage: 500 MG QD PO
     Route: 048
     Dates: start: 20041029, end: 20041209
  3. GEFITINIB [Suspect]
     Indication: RECURRENT CANCER
     Dosage: 500 MG QD PO
     Route: 048
     Dates: start: 20041029, end: 20041209
  4. GEFITINIB [Suspect]
     Indication: BRAIN NEOPLASM MALIGNANT
     Dosage: 500 MG QD PO
     Route: 048
     Dates: start: 20050114, end: 20050210
  5. GEFITINIB [Suspect]
     Indication: GLIOMA
     Dosage: 500 MG QD PO
     Route: 048
     Dates: start: 20050114, end: 20050210
  6. GEFITINIB [Suspect]
     Indication: RECURRENT CANCER
     Dosage: 500 MG QD PO
     Route: 048
     Dates: start: 20050114, end: 20050210
  7. RAPAMUNE [Suspect]
     Indication: GLIOMA
     Dosage: 30 MG ONCE
  8. RAPAMUNE [Suspect]
     Indication: RECURRENT CANCER
     Dosage: 30 MG ONCE
  9. RAPAMUNE [Suspect]
     Indication: GLIOMA
     Dosage: 10 MG QD PO
     Route: 048
     Dates: start: 20041105, end: 20041209
  10. RAPAMUNE [Suspect]
     Indication: RECURRENT CANCER
     Dosage: 10 MG QD PO
     Route: 048
     Dates: start: 20041105, end: 20041209
  11. RAPAMUNE [Suspect]
     Indication: GLIOMA
     Dosage: 10 MG QD PO
     Route: 048
     Dates: start: 20050114, end: 20050210
  12. RAPAMUNE [Suspect]
     Indication: RECURRENT CANCER
     Dosage: 10 MG QD PO
     Route: 048
     Dates: start: 20050114, end: 20050210
  13. DECADRON [Concomitant]
  14. MAGIC MOUTHWASH WITH LIDOCAINE [Concomitant]
  15. PEPCID AC [Concomitant]
  16. AMOXICILLIN [Concomitant]
  17. LIDOCAINE AND NYSTATIN [Concomitant]
  18. CLORETAZINE INVESTIGATIONAL DRUG THERAPY [Concomitant]
  19. TEMODAR [Concomitant]
  20. AUGMENTIN '125' [Concomitant]
  21. MICONAZOLE [Concomitant]
  22. LEVAQUIN [Concomitant]
  23. HUMULIN N [Concomitant]
  24. RISPERDAL [Concomitant]

REACTIONS (12)
  - ACTIVITIES OF DAILY LIVING IMPAIRED [None]
  - APHAGIA [None]
  - DEHYDRATION [None]
  - DEPRESSED LEVEL OF CONSCIOUSNESS [None]
  - DIARRHOEA [None]
  - HYPONATRAEMIA [None]
  - LETHARGY [None]
  - LEUKOPENIA [None]
  - MUCOSAL INFLAMMATION [None]
  - NEUTROPHIL PERCENTAGE ABNORMAL [None]
  - PNEUMONIA [None]
  - STOMATITIS [None]
